FAERS Safety Report 6062510-3 (Version None)
Quarter: 2009Q1

REPORT INFORMATION
  Report Type: 
  Country: None (occurrence: None)
  Receive Date: 20090203
  Receipt Date: 20090126
  Transmission Date: 20090719
  Serious: Yes (Other)
  Sender: FDA-Public Use
  Company Number: US-JNJFOC-20080903602

PATIENT
  Sex: Female
  Weight: 129 kg

DRUGS (10)
  1. CISAPRIDE [Suspect]
     Route: 048
  2. CISAPRIDE [Suspect]
     Indication: IMPAIRED GASTRIC EMPTYING
     Route: 048
  3. RHINOCORT [Concomitant]
     Indication: MULTIPLE ALLERGIES
     Route: 045
  4. ALLEGRA [Concomitant]
     Indication: MULTIPLE ALLERGIES
     Route: 065
  5. AMBIEN [Concomitant]
     Indication: INSOMNIA
     Dosage: EVERY NIGHT AT BEDTIME
     Route: 048
  6. MIRALAX [Concomitant]
     Indication: CONSTIPATION
     Route: 065
  7. PROTONIX [Concomitant]
     Indication: GASTROOESOPHAGEAL REFLUX DISEASE
     Route: 065
  8. TRAZODONE HCL [Concomitant]
     Indication: IMPAIRED GASTRIC EMPTYING
     Dosage: EVERY DAY AFTER NOON
     Route: 048
  9. TYLENOL XS [Concomitant]
     Indication: DISCOMFORT
     Dosage: EVERY 4 HOURS
     Route: 048
  10. TRAMADOL HCL [Concomitant]
     Dosage: EVERY 4 HOURS
     Route: 065

REACTIONS (1)
  - ELECTROCARDIOGRAM QT PROLONGED [None]
